FAERS Safety Report 23273268 (Version 2)
Quarter: 2023Q4

REPORT INFORMATION
  Report Type: Report from Study
  Country: US (occurrence: US)
  Receive Date: 20231207
  Receipt Date: 20231226
  Transmission Date: 20240110
  Serious: Yes (Hospitalization, Other)
  Sender: FDA-Public Use
  Company Number: US-GILEAD-2023-0653624

PATIENT
  Sex: Female

DRUGS (1)
  1. SACITUZUMAB GOVITECAN-HZIY [Suspect]
     Active Substance: SACITUZUMAB GOVITECAN-HZIY
     Indication: Breast cancer
     Dosage: 1572 MG, OVER 3 HOURS ON DAYS 1 AND 8 EVERY 21 DAYS
     Route: 042
     Dates: start: 20230909

REACTIONS (2)
  - Full blood count decreased [Unknown]
  - Pneumonia [Unknown]
